FAERS Safety Report 20699814 (Version 1)
Quarter: 2022Q2

REPORT INFORMATION
  Report Type: Spontaneous
  Country: US (occurrence: None)
  Receive Date: 20220411
  Receipt Date: 20220411
  Transmission Date: 20220720
  Serious: Yes (Hospitalization)
  Sender: FDA-Public Use
  Company Number: None

PATIENT
  Age: 72 Year
  Sex: Female

DRUGS (4)
  1. IMATINIB MESYLATE [Suspect]
     Active Substance: IMATINIB MESYLATE
  2. ANASTROZOLE [Concomitant]
     Active Substance: ANASTROZOLE
  3. GLEEVEC [Concomitant]
     Active Substance: IMATINIB MESYLATE
  4. SIMVASTATIN [Concomitant]

REACTIONS (4)
  - Viral infection [None]
  - Pneumonia [None]
  - Chronic obstructive pulmonary disease [None]
  - Diarrhoea [None]

NARRATIVE: CASE EVENT DATE: 20220330
